FAERS Safety Report 6648786-X (Version None)
Quarter: 2010Q1

REPORT INFORMATION
  Report Type: 
  Country: None (occurrence: None)
  Receive Date: 20100324
  Receipt Date: 20100311
  Transmission Date: 20100710
  Serious: Yes (Hospitalization)
  Sender: FDA-Public Use
  Company Number: PHHY2010FR14738

PATIENT
  Sex: Female

DRUGS (5)
  1. TEGRETOL [Suspect]
     Dosage: 400 MG, BID
     Route: 048
     Dates: end: 20091129
  2. TEGRETOL [Suspect]
     Dosage: 900 MG, DAILY
     Route: 048
     Dates: start: 20091130, end: 20091207
  3. TEGRETOL [Suspect]
     Dosage: 700 MG/ML, UNK
     Route: 048
  4. KEPPRA [Concomitant]
     Dosage: 500 MG, BID
     Route: 048
     Dates: start: 20091130, end: 20091207
  5. KEPPRA [Concomitant]
     Dosage: 250 MG, BID
     Route: 048

REACTIONS (6)
  - CONFUSIONAL STATE [None]
  - DISORIENTATION [None]
  - DRUG LEVEL INCREASED [None]
  - HALLUCINATION, VISUAL [None]
  - PSYCHOMOTOR HYPERACTIVITY [None]
  - TACHYCARDIA [None]
